FAERS Safety Report 25896140 (Version 1)
Quarter: 2025Q4

REPORT INFORMATION
  Report Type: Spontaneous
  Country: US (occurrence: US)
  Receive Date: 20251008
  Receipt Date: 20251008
  Transmission Date: 20260118
  Serious: Yes (Hospitalization, Other)
  Sender: TEVA
  Company Number: US-TEVA-VS-3380141

PATIENT
  Age: 13 Year
  Sex: Male

DRUGS (1)
  1. FENTANYL [Suspect]
     Active Substance: FENTANYL
     Indication: Product used for unknown indication
     Route: 065

REACTIONS (11)
  - Toxicity to various agents [Unknown]
  - Rhabdomyolysis [Unknown]
  - Acute kidney injury [Unknown]
  - Hepatic enzyme increased [Unknown]
  - Brain hypoxia [Recovering/Resolving]
  - Toxic encephalopathy [Recovering/Resolving]
  - Brain injury [Unknown]
  - Mental status changes [Recovering/Resolving]
  - Agitation [Recovering/Resolving]
  - Seizure [Recovering/Resolving]
  - Overdose [Unknown]
